FAERS Safety Report 7443187-9 (Version None)
Quarter: 2011Q2

REPORT INFORMATION
  Report Type: 
  Country: None (occurrence: None)
  Receive Date: 20110428
  Receipt Date: 20090903
  Transmission Date: 20111010
  Serious: Yes (Death, Other)
  Sender: FDA-Public Use
  Company Number: B0592121A

PATIENT
  Sex: Male
  Weight: 82 kg

DRUGS (9)
  1. DURAGESIC-100 [Concomitant]
     Indication: BONE PAIN
     Route: 062
     Dates: start: 20070918, end: 20071010
  2. PREDNISONE [Suspect]
     Indication: MULTIPLE MYELOMA
     Dosage: 184MG PER DAY
     Route: 048
     Dates: start: 20070918, end: 20070921
  3. KETONAL [Concomitant]
     Indication: BONE PAIN
     Route: 048
     Dates: start: 20071009, end: 20071010
  4. TRAMADOL [Concomitant]
     Indication: BONE PAIN
     Dates: end: 20070917
  5. ACETYLSALICYLIC ACID SRT [Concomitant]
     Indication: THROMBOSIS PROPHYLAXIS
     Route: 048
     Dates: start: 20070918, end: 20071010
  6. MELPHALAN [Suspect]
     Indication: MULTIPLE MYELOMA
     Dosage: 16MG PER DAY
     Route: 048
     Dates: start: 20070918, end: 20071021
  7. LENALIDOMIDE [Suspect]
     Indication: MULTIPLE MYELOMA
     Dosage: 10MG PER DAY
     Route: 048
     Dates: start: 20070918, end: 20071008
  8. OMEPRAZOLE [Concomitant]
     Route: 048
     Dates: start: 20070918, end: 20071010
  9. LENOGRASTIM [Concomitant]
     Indication: NEUTROPENIA
     Dates: start: 20071003, end: 20071011

REACTIONS (8)
  - NEUTROPENIA [None]
  - CONDITION AGGRAVATED [None]
  - SHOCK [None]
  - LOSS OF CONSCIOUSNESS [None]
  - ATRIAL FIBRILLATION [None]
  - RESPIRATORY FAILURE [None]
  - DYSPNOEA [None]
  - HYPOTENSION [None]
